FAERS Safety Report 8118983 (Version 4)
Quarter: 2014Q1

REPORT INFORMATION
  Report Type: Report from Study
  Country: JP (occurrence: JP)
  Receive Date: 20110902
  Receipt Date: 20140203
  Transmission Date: 20141002
  Serious: Yes (Disabling, Other)
  Sender: FDA-Public Use
  Company Number: PHHY2011JP72524

PATIENT
  Age: 35 Year
  Sex: Male

DRUGS (21)
  1. LEPONEX / CLOZARIL [Suspect]
     Indication: SCHIZOPHRENIA, PARANOID TYPE
     Dosage: 12.5 MG, DAILY
     Route: 048
     Dates: start: 20110804, end: 20110804
  2. LEPONEX / CLOZARIL [Suspect]
     Dosage: 25 MG, DAILY
     Route: 048
     Dates: start: 20110805, end: 20110807
  3. LEPONEX / CLOZARIL [Suspect]
     Dosage: 50 MG, DAILY
     Route: 048
     Dates: start: 20110808, end: 20110810
  4. LEPONEX / CLOZARIL [Suspect]
     Dosage: 75 MG, DAILY
     Route: 048
     Dates: start: 20110811, end: 20110817
  5. LEPONEX / CLOZARIL [Suspect]
     Dosage: 100 MG, DAILY
     Route: 048
     Dates: start: 20110818, end: 20110824
  6. LEPONEX / CLOZARIL [Suspect]
     Dosage: 125 MG, DAILY
     Route: 048
     Dates: start: 20110825, end: 20110831
  7. LEPONEX / CLOZARIL [Suspect]
     Dosage: 150 MG, DAILY
     Route: 048
     Dates: start: 20110901, end: 20110914
  8. LEPONEX / CLOZARIL [Suspect]
     Dosage: 175 MG, DAILY
     Route: 048
     Dates: start: 20110915, end: 20110921
  9. LEPONEX / CLOZARIL [Suspect]
     Dosage: 200 MG, DAILY
     Route: 048
     Dates: start: 20110922, end: 20110928
  10. LEPONEX / CLOZARIL [Suspect]
     Dosage: 225 MG, DAILY
     Route: 048
     Dates: start: 20110929, end: 20111007
  11. LEPONEX / CLOZARIL [Suspect]
     Dosage: 250 MG, DAILY
     Route: 048
     Dates: start: 20111008, end: 20111011
  12. LEPONEX / CLOZARIL [Suspect]
     Dosage: 275 MG, DAILY
     Route: 048
     Dates: start: 20111012, end: 20111019
  13. LEPONEX / CLOZARIL [Suspect]
     Dosage: 300 MG, DAILY
     Route: 048
     Dates: start: 20111020, end: 20111026
  14. LEPONEX / CLOZARIL [Suspect]
     Dosage: 325 MG, DAILY
     Route: 048
     Dates: start: 20111027, end: 20111102
  15. LEPONEX / CLOZARIL [Suspect]
     Dosage: 350 MG, DAILY
     Route: 048
     Dates: start: 20111103, end: 20111116
  16. LEPONEX / CLOZARIL [Suspect]
     Dosage: 375 MG, DAILY
     Route: 048
     Dates: start: 20111117, end: 20111123
  17. LEPONEX / CLOZARIL [Suspect]
     Dosage: 400 MG, DAILY
     Route: 048
     Dates: start: 20111124
  18. CLONAZEPAM [Concomitant]
     Indication: PROPHYLAXIS
     Dosage: 3 MG, UNK
     Route: 048
     Dates: start: 20111104
  19. FLUNITRAZEPAM [Concomitant]
     Indication: SCHIZOPHRENIA, PARANOID TYPE
     Dosage: 2 MG, UNK
     Route: 048
     Dates: start: 20120510, end: 20120920
  20. HERBAL EXTRACT NOS [Concomitant]
     Indication: PROPHYLAXIS
     Dosage: 3 DF, UNK
     Route: 048
     Dates: start: 20111021
  21. ATENOLOL [Concomitant]
     Indication: PROPHYLAXIS
     Dosage: 50 MG, UNK
     Route: 048
     Dates: start: 20120205

REACTIONS (11)
  - Epilepsy [Recovered/Resolved]
  - Infection [Recovered/Resolved]
  - C-reactive protein increased [Recovered/Resolved]
  - Blood pressure diastolic increased [Unknown]
  - Weight increased [Unknown]
  - Red blood cell count decreased [Unknown]
  - Haematocrit decreased [Unknown]
  - Basophil percentage increased [Unknown]
  - Haemoglobin decreased [Unknown]
  - Eosinophil percentage increased [Unknown]
  - Blood pressure systolic increased [Unknown]
